FAERS Safety Report 8304572-6 (Version None)
Quarter: 2012Q2

REPORT INFORMATION
  Report Type: 
  Country: None (occurrence: None)
  Receive Date: 20120423
  Receipt Date: 20120410
  Transmission Date: 20120825
  Serious: Yes (Life-Threatening, Hospitalization)
  Sender: FDA-Public Use
  Company Number: FR-GLAXOSMITHKLINE-B0794297A

PATIENT
  Sex: Female

DRUGS (13)
  1. CLOZAPINE [Suspect]
     Indication: PRODUCT USED FOR UNKNOWN INDICATION
     Route: 048
     Dates: start: 20120103, end: 20120313
  2. LASIX [Concomitant]
     Route: 065
  3. POTASSIUM CHLORIDE [Concomitant]
     Route: 065
  4. PAROXETINE HYDROCHLORIDE [Concomitant]
     Route: 065
  5. VALPROIC ACID [Concomitant]
     Route: 065
  6. LEVOTHYROXINE SODIUM [Concomitant]
     Route: 065
  7. INSULATARD NPH HUMAN [Concomitant]
     Route: 065
  8. AMLODIPINE BESYLATE [Concomitant]
     Route: 065
  9. LAMICTAL [Suspect]
     Indication: PRODUCT USED FOR UNKNOWN INDICATION
     Route: 048
  10. EXELON [Concomitant]
     Route: 065
  11. BIMATOPROST AND TIMOLOL MALEATE [Concomitant]
     Route: 065
  12. ACETAMINOPHEN [Concomitant]
     Route: 065
  13. CALCIUM + VITAMIN D3 [Concomitant]
     Route: 065

REACTIONS (4)
  - NEUTROPHIL COUNT DECREASED [None]
  - AGRANULOCYTOSIS [None]
  - PYREXIA [None]
  - SINUSITIS [None]
